FAERS Safety Report 6169560-7 (Version None)
Quarter: 2009Q2

REPORT INFORMATION
  Report Type: 
  Country: None (occurrence: None)
  Receive Date: 20090428
  Receipt Date: 20090420
  Transmission Date: 20091009
  Serious: Yes (Hospitalization)
  Sender: FDA-Public Use
  Company Number: US-KINGPHARMUSA00001-K200900469

PATIENT
  Sex: Female
  Weight: 117.91 kg

DRUGS (1)
  1. EPIPEN [Suspect]
     Indication: FOOD ALLERGY
     Dosage: 0.3 MG, SINGLE
     Dates: start: 20090101, end: 20090101

REACTIONS (3)
  - ACCIDENTAL EXPOSURE [None]
  - APPLICATION SITE NECROSIS [None]
  - INJECTION SITE SWELLING [None]
